FAERS Safety Report 4353918-2 (Version None)
Quarter: 2004Q2

REPORT INFORMATION
  Report Type: 
  Country: None (occurrence: None)
  Receive Date: 20040506
  Receipt Date: 20030925
  Transmission Date: 20050107
  Serious: No
  Sender: FDA-Public Use
  Company Number: US-GLAXOSMITHKLINE-A0427507A

PATIENT
  Sex: Female

DRUGS (3)
  1. AMOXICILLIN [Suspect]
     Dosage: 1G UNKNOWN
     Route: 048
     Dates: start: 20030526, end: 20030601
  2. BIAXIN [Concomitant]
  3. ACIPHEX [Concomitant]

REACTIONS (5)
  - EATING DISORDER [None]
  - GLOSSODYNIA [None]
  - ORAL FUNGAL INFECTION [None]
  - SENSATION OF FOREIGN BODY [None]
  - WEIGHT DECREASED [None]
